FAERS Safety Report 6145543 (Version 2)
Quarter: 2020Q2

REPORT INFORMATION
  Report Type: Spontaneous
  Country: US (occurrence: US)
  Receive Date: 20061012
  Receipt Date: 20200410
  Transmission Date: 20200714
  Serious: Yes (Hospitalization)
  Sender: FDA-Public Use
  Company Number: PHBS2006US15656

PATIENT
  Age: 36 Year
  Sex: Male

DRUGS (1)
  1. DICLOFENAC [Suspect]
     Active Substance: DICLOFENAC
     Indication: BACK PAIN
     Dosage: UNK
     Route: 030

REACTIONS (8)
  - Embolia cutis medicamentosa [Recovered/Resolved]
  - Leukocytosis [Recovered/Resolved]
  - Skin induration [Recovering/Resolving]
  - Pain of skin [Recovering/Resolving]
  - Skin discolouration [Recovering/Resolving]
  - Myoglobinuria [Recovered/Resolved]
  - Aspartate aminotransferase increased [Recovered/Resolved]
  - Blood lactate dehydrogenase increased [Recovered/Resolved]
